FAERS Safety Report 4502482-3 (Version None)
Quarter: 2004Q4

REPORT INFORMATION
  Report Type: 
  Country: None (occurrence: None)
  Receive Date: 20041112
  Receipt Date: 20041026
  Transmission Date: 20050328
  Serious: Yes (Life-Threatening)
  Sender: FDA-Public Use
  Company Number: BRO-007726

PATIENT
  Age: 42 Year
  Sex: Male

DRUGS (10)
  1. IOPAMIDOL [Suspect]
     Indication: ANGINA UNSTABLE
     Dosage: 200 ML INTRACORONARY  A FEW MINS
     Route: 022
     Dates: start: 20040821, end: 20040821
  2. IOPAMIDOL [Suspect]
     Indication: ARTERIOGRAM CORONARY
     Dosage: 200 ML INTRACORONARY  A FEW MINS
     Route: 022
     Dates: start: 20040821, end: 20040821
  3. SAXIZON (HYDROCORTISONE SODIUM SUCCINATE) [Concomitant]
  4. POLAMARIN, (DEXCHLORPHENIRAMINE MALEATE) [Concomitant]
  5. ACECOL (TEMOCAPRIL HYDROCHLORIDE) [Concomitant]
  6. ASPIRIN [Concomitant]
  7. HERBESSOR R, (DILTIAZEM HYDROCHLORIDE) [Concomitant]
  8. TICLOPIDINE HCL [Concomitant]
  9. LIPOVAS    BANYU  (SIMVASTATIN) [Concomitant]
  10. RENAGEL [Concomitant]

REACTIONS (5)
  - CORONARY ARTERY STENOSIS [None]
  - HAEMODIALYSIS [None]
  - PYREXIA [None]
  - RENAL FAILURE CHRONIC [None]
  - TOXIC EPIDERMAL NECROLYSIS [None]
